FAERS Safety Report 4794262-9 (Version None)
Quarter: 2005Q4

REPORT INFORMATION
  Report Type: 
  Country: None (occurrence: None)
  Receive Date: 20051011
  Receipt Date: 20030616
  Transmission Date: 20060501
  Serious: Yes (Hospitalization)
  Sender: FDA-Public Use
  Company Number: JP-GLAXOSMITHKLINE-B0302093A

PATIENT
  Age: 29 Year
  Sex: Male

DRUGS (10)
  1. ABACAVIR SULFATE [Suspect]
     Indication: HIV INFECTION
     Dosage: 600MG PER DAY
     Route: 048
     Dates: start: 20010905, end: 20021114
  2. LAMIVUDINE [Suspect]
     Indication: HIV INFECTION
     Dosage: 300MG PER DAY
     Route: 048
     Dates: start: 20010401, end: 20021114
  3. STAVUDINE [Suspect]
     Indication: HIV INFECTION
     Dosage: 80MG PER DAY
     Route: 048
     Dates: start: 20010401, end: 20011114
  4. INDINAVIR SULFATE [Concomitant]
     Indication: HIV INFECTION
     Dosage: 1.2G PER DAY
     Route: 048
     Dates: start: 20010401, end: 20010730
  5. RITONAVIR [Concomitant]
     Indication: HIV INFECTION
     Dosage: 400MG PER DAY
     Route: 048
     Dates: start: 20010401, end: 20010730
  6. EFAVIRENZ [Concomitant]
     Indication: HIV INFECTION
     Dosage: 600MG PER DAY
     Route: 048
     Dates: start: 20010731, end: 20010904
  7. ALLOPURINOL [Concomitant]
  8. CHINESE MEDICATION [Concomitant]
     Indication: INFECTION PROPHYLAXIS
  9. ANTIHEMOPHILIAC FACTOR HUMATE P [Concomitant]
     Indication: HAEMOPHILIA
  10. NEO-MINOPHAGEN C [Concomitant]
     Indication: FACTOR VIII DEFICIENCY

REACTIONS (1)
  - HEPATIC FUNCTION ABNORMAL [None]
